FAERS Safety Report 9632625 (Version 1)
Quarter: 2013Q4

REPORT INFORMATION
  Report Type: Spontaneous
  Country: US (occurrence: US)
  Receive Date: 20131018
  Receipt Date: 20131018
  Transmission Date: 20140711
  Serious: Yes (Hospitalization)
  Sender: FDA-Public Use
  Company Number: US-GLAXOSMITHKLINE-A1045782A

PATIENT
  Age: 67 Year
  Sex: 0

DRUGS (6)
  1. VOTRIENT [Suspect]
     Indication: RENAL CELL CARCINOMA
     Dosage: 4TABS PER DAY
     Route: 048
     Dates: start: 20130901
  2. SUNITINIB [Concomitant]
  3. ATORVASTATIN [Concomitant]
  4. TRAMADOL [Concomitant]
  5. VARDENAFIL [Concomitant]
  6. OXYCODONE [Concomitant]

REACTIONS (4)
  - Renal failure acute [Unknown]
  - Ejection fraction decreased [Unknown]
  - Dyspnoea [Unknown]
  - Decreased appetite [Unknown]
